FAERS Safety Report 25221255 (Version 1)
Quarter: 2025Q2

REPORT INFORMATION
  Report Type: Other
  Country: US (occurrence: US)
  Receive Date: 20250421
  Receipt Date: 20250421
  Transmission Date: 20250717
  Serious: Yes (Death, Other)
  Sender: B BRAUN
  Company Number: US-B.Braun Medical Inc.-2175274

PATIENT
  Age: 23 Year
  Sex: Female

DRUGS (2)
  1. ACETAMINOPHEN [Suspect]
     Active Substance: ACETAMINOPHEN
  2. ISOPROPYL ALCOHOL [Suspect]
     Active Substance: ISOPROPYL ALCOHOL

REACTIONS (9)
  - Foetal death [Fatal]
  - Toxicity to various agents [Fatal]
  - Lethargy [Fatal]
  - Metabolic acidosis [Fatal]
  - Maternal exposure during pregnancy [Fatal]
  - Transaminases increased [Fatal]
  - Overdose [Fatal]
  - Acute kidney injury [Fatal]
  - Seizure [Fatal]
